FAERS Safety Report 13268101 (Version 7)
Quarter: 2018Q1

REPORT INFORMATION
  Report Type: Report from Study
  Country: US (occurrence: US)
  Receive Date: 20170224
  Receipt Date: 20180228
  Transmission Date: 20180508
  Serious: Yes (Hospitalization, Other)
  Sender: FDA-Public Use
  Company Number: PHHY2016US182922

PATIENT

DRUGS (26)
  1. TOBI PODHALER [Suspect]
     Active Substance: TOBRAMYCIN
     Indication: PSEUDOMONAS INFECTION
     Dosage: 2 DF (112), QD
     Route: 055
     Dates: start: 20161210, end: 20161221
  2. CAYSTON [Suspect]
     Active Substance: AZTREONAM
     Dosage: 3 DF (75), QD
     Route: 065
     Dates: start: 20161111, end: 20161209
  3. CAYSTON [Suspect]
     Active Substance: AZTREONAM
     Dosage: 3 DF (75), QD
     Route: 065
     Dates: start: 20170207, end: 20170307
  4. TOBI PODHALER [Suspect]
     Active Substance: TOBRAMYCIN
     Dosage: 2 DF(112), UNK
     Route: 055
     Dates: start: 20170623, end: 20170712
  5. CAYSTON [Suspect]
     Active Substance: AZTREONAM
     Dosage: 3 DF (75), QD
     Route: 065
     Dates: start: 20171019, end: 20171116
  6. TOBI PODHALER [Suspect]
     Active Substance: TOBRAMYCIN
     Dosage: 2 DF(112), UNK
     Route: 055
     Dates: start: 20180207
  7. CAYSTON [Suspect]
     Active Substance: AZTREONAM
     Dosage: 3 DF (75), QD
     Route: 065
     Dates: start: 20161221, end: 20170104
  8. TOBI [Suspect]
     Active Substance: TOBRAMYCIN
     Indication: CYSTIC FIBROSIS
     Dosage: 2 DF (300), QD
     Route: 055
     Dates: start: 20160104, end: 20160204
  9. TOBI [Suspect]
     Active Substance: TOBRAMYCIN
     Dosage: 2 DF (300), QD
     Route: 055
     Dates: start: 20160525, end: 20160604
  10. TOBI [Suspect]
     Active Substance: TOBRAMYCIN
     Dosage: 2 DF (300), QD
     Route: 055
     Dates: start: 20160728, end: 20160825
  11. TOBI [Suspect]
     Active Substance: TOBRAMYCIN
     Dosage: 1 DF (300), TID
     Route: 065
     Dates: start: 20170501
  12. TOBI PODHALER [Suspect]
     Active Substance: TOBRAMYCIN
     Dosage: 2 DF (112), QD
     Route: 055
     Dates: start: 20170106, end: 20170206
  13. CAYSTON [Suspect]
     Active Substance: AZTREONAM
     Dosage: 3 DF (75), QD
     Route: 065
     Dates: start: 20160828, end: 20160907
  14. CAYSTON [Suspect]
     Active Substance: AZTREONAM
     Dosage: 3 DF (75), QD
     Route: 065
     Dates: start: 20170525, end: 20170622
  15. CAYSTON [Suspect]
     Active Substance: AZTREONAM
     Dosage: 3 DF (75), QD
     Route: 065
     Dates: start: 20170824, end: 20170921
  16. TOBI PODHALER [Suspect]
     Active Substance: TOBRAMYCIN
     Dosage: 2 DF (112), QD
     Route: 055
     Dates: start: 20170308, end: 20170327
  17. CAYSTON [Suspect]
     Active Substance: AZTREONAM
     Dosage: 3 DF (75), QD
     Route: 065
     Dates: start: 20160328, end: 20160331
  18. CAYSTON [Suspect]
     Active Substance: AZTREONAM
     Dosage: 3 DF (75), QD
     Route: 065
     Dates: start: 20160630, end: 20160707
  19. CAYSTON [Suspect]
     Active Substance: AZTREONAM
     Dosage: 3 DF (75), QD
     Route: 065
     Dates: start: 20160909, end: 20161012
  20. TOBI [Suspect]
     Active Substance: TOBRAMYCIN
     Indication: PSEUDOMONAS INFECTION
     Dosage: 2 DF (300), QD
     Route: 055
     Dates: start: 20160305, end: 20160327
  21. TOBI [Suspect]
     Active Substance: TOBRAMYCIN
     Dosage: 2 DF (300), QD
     Route: 055
     Dates: start: 20160505, end: 20160517
  22. TOBI PODHALER [Suspect]
     Active Substance: TOBRAMYCIN
     Indication: CYSTIC FIBROSIS
     Dosage: 2 DF (112), QD
     Route: 055
     Dates: start: 20161013, end: 20161110
  23. CAYSTON [Suspect]
     Active Substance: AZTREONAM
     Indication: PRODUCT USED FOR UNKNOWN INDICATION
     Dosage: 3 DF (75), QD
     Route: 065
     Dates: start: 20160205, end: 20160304
  24. CAYSTON [Suspect]
     Active Substance: AZTREONAM
     Dosage: 3 DF (75), QD
     Route: 065
     Dates: start: 20170714, end: 20170811
  25. CAYSTON [Suspect]
     Active Substance: AZTREONAM
     Dosage: 3 DF (75), QD
     Route: 065
     Dates: start: 20180124, end: 20180207
  26. BETHKIS [Suspect]
     Active Substance: TOBRAMYCIN
     Indication: PRODUCT USED FOR UNKNOWN INDICATION
     Dosage: 2 DF (300), QD
     Route: 065
     Dates: start: 20160520, end: 20160525

REACTIONS (23)
  - Pancreatitis [Recovered/Resolved]
  - Alanine aminotransferase increased [Recovered/Resolved]
  - Infective pulmonary exacerbation of cystic fibrosis [Recovered/Resolved]
  - Bronchitis [Recovered/Resolved]
  - Bronchitis [Recovered/Resolved]
  - Bronchopulmonary aspergillosis allergic [Recovered/Resolved]
  - Sepsis [Recovered/Resolved]
  - Cough [Recovered/Resolved]
  - Infective pulmonary exacerbation of cystic fibrosis [Recovered/Resolved]
  - Infective pulmonary exacerbation of cystic fibrosis [Unknown]
  - Device dislocation [Recovered/Resolved]
  - Alanine aminotransferase increased [Recovered/Resolved]
  - Infective pulmonary exacerbation of cystic fibrosis [Recovered/Resolved]
  - Acne [Unknown]
  - Pancreatitis [Recovered/Resolved]
  - Pancreatitis [Recovered/Resolved]
  - Infective pulmonary exacerbation of cystic fibrosis [Recovered/Resolved]
  - Fatigue [Unknown]
  - Haemoptysis [Recovered/Resolved]
  - Cough [Unknown]
  - Bronchiectasis [Recovered/Resolved]
  - Pyrexia [Recovered/Resolved]
  - Bronchitis [Recovered/Resolved]

NARRATIVE: CASE EVENT DATE: 20160123
